FAERS Safety Report 4316440-5 (Version None)
Quarter: 2004Q1

REPORT INFORMATION
  Report Type: 
  Country: None (occurrence: None)
  Receive Date: 20040312
  Receipt Date: 20040109
  Transmission Date: 20041129
  Serious: No
  Sender: FDA-Public Use
  Company Number: US-BRISTOL-MYERS SQUIBB COMPANY-12474607

PATIENT
  Age: 9 Year
  Sex: Male
  Weight: 42 kg

DRUGS (2)
  1. VEETIDS [Suspect]
     Indication: TOOTH INFECTION
     Dosage: 250 MG IN 5 ML OF SOLUTION, 7.5-10.0 ML EVERY 6 HOURS
     Route: 048
     Dates: start: 20031219, end: 20031223
  2. NONE [Concomitant]

REACTIONS (5)
  - CELLULITIS [None]
  - DRUG HYPERSENSITIVITY [None]
  - VISION BLURRED [None]
  - VISUAL ACUITY REDUCED [None]
  - VISUAL DISTURBANCE [None]
